FAERS Safety Report 6523164-2 (Version None)
Quarter: 2009Q4

REPORT INFORMATION
  Report Type: 
  Country: None (occurrence: None)
  Receive Date: 20091222
  Receipt Date: 20091211
  Transmission Date: 20100525
  Serious: Yes (Life-Threatening, Hospitalization)
  Sender: FDA-Public Use
  Company Number: ADR53652009

PATIENT
  Age: 81 Year
  Sex: Female

DRUGS (5)
  1. SIMVASTATIN [Suspect]
     Indication: CARDIOVASCULAR EVENT PROPHYLAXIS
     Dosage: ORAL
     Route: 048
     Dates: end: 20081118
  2. FUSIDIC ACID [Concomitant]
  3. TRIMETHOPRIM [Concomitant]
  4. BUMETANIDE [Concomitant]
  5. RAMIPRIL [Concomitant]

REACTIONS (2)
  - DRUG INTERACTION [None]
  - RHABDOMYOLYSIS [None]
